FAERS Safety Report 8233621 (Version 2)
Quarter: 2014Q1

REPORT INFORMATION
  Report Type: Spontaneous
  Country: JP (occurrence: JP)
  Receive Date: 20111107
  Receipt Date: 20140123
  Transmission Date: 20141002
  Serious: Yes (Other)
  Sender: FDA-Public Use
  Company Number: PHHY2011JP91218

PATIENT
  Age: 42 Year
  Sex: Female

DRUGS (3)
  1. CICLOSPORIN [Suspect]
     Indication: PSORIASIS
     Dosage: 2-5 MG/KG/DAY
     Route: 048
  2. INFLIXIMAB [Suspect]
     Dosage: 5 MG/KG
  3. INFLIXIMAB [Suspect]
     Dosage: 5.4 MG/KG, DAY

REACTIONS (1)
  - Renal impairment [Unknown]
